FAERS Safety Report 6796909-4 (Version None)
Quarter: 2010Q2

REPORT INFORMATION
  Report Type: 
  Country: None (occurrence: None)
  Receive Date: 20100520
  Receipt Date: 20090610
  Transmission Date: 20101027
  Serious: Yes (Other)
  Sender: FDA-Public Use
  Company Number: 2009226462

PATIENT
  Age: 51 Year
  Weight: 100 kg

DRUGS (8)
  1. PROVERA [Suspect]
     Indication: HORMONE REPLACEMENT THERAPY
     Dosage: ORAL
     Route: 048
     Dates: start: 19960101, end: 19980101
  2. PREMARIN [Suspect]
     Indication: HORMONE REPLACEMENT THERAPY
     Dates: start: 19960101, end: 19980101
  3. PREMPRO [Suspect]
     Indication: HORMONE REPLACEMENT THERAPY
     Dates: start: 19960101, end: 20000101
  4. ASPIRIN [Concomitant]
  5. BUSPAR [Concomitant]
  6. NEXIUM [Concomitant]
  7. ZETIA [Concomitant]
  8. LANTUS [Concomitant]

REACTIONS (1)
  - PULMONARY EMBOLISM [None]
